FAERS Safety Report 9913537 (Version 1)
Quarter: 2014Q1

REPORT INFORMATION
  Report Type: Spontaneous
  Country: US (occurrence: US)
  Receive Date: 20140220
  Receipt Date: 20140220
  Transmission Date: 20141002
  Serious: Yes (Death, Other)
  Sender: FDA-Public Use
  Company Number: US-ASTRAZENECA-2014SE11529

PATIENT
  Sex: 0

DRUGS (1)
  1. BRILINTA [Suspect]
     Route: 048

REACTIONS (3)
  - Death [Fatal]
  - Adverse event [Unknown]
  - Haemorrhage [Unknown]
